FAERS Safety Report 16278380 (Version 4)
Quarter: 2019Q3

REPORT INFORMATION
  Report Type: Report from Study
  Country: US (occurrence: US)
  Receive Date: 20190506
  Receipt Date: 20190910
  Transmission Date: 20191004
  Serious: Yes (Hospitalization)
  Sender: FDA-Public Use
  Company Number: US-EISAI MEDICAL RESEARCH-EC-2019-055650

PATIENT
  Sex: Male
  Weight: 76.2 kg

DRUGS (6)
  1. LENVIMA [Suspect]
     Active Substance: LENVATINIB
     Indication: HEPATIC CANCER
     Route: 048
     Dates: start: 20190416, end: 20190427
  2. HYDROXYZINE PAMOATE. [Suspect]
     Active Substance: HYDROXYZINE PAMOATE
     Indication: PRURITUS
     Dosage: DOSE AND FREQUENCY UNKNOWN
     Route: 065
     Dates: start: 2019
  3. LENVIMA [Suspect]
     Active Substance: LENVATINIB
     Route: 048
     Dates: start: 20190519, end: 201909
  4. LENVIMA [Suspect]
     Active Substance: LENVATINIB
     Route: 048
     Dates: start: 20190428, end: 201905
  5. LENVIMA [Suspect]
     Active Substance: LENVATINIB
     Route: 048
     Dates: start: 201905, end: 201905
  6. LENVIMA [Suspect]
     Active Substance: LENVATINIB
     Route: 048
     Dates: start: 201905, end: 201905

REACTIONS (21)
  - Diarrhoea [Not Recovered/Not Resolved]
  - Gastrointestinal obstruction [Recovering/Resolving]
  - Weight decreased [Not Recovered/Not Resolved]
  - Pruritus [Recovered/Resolved]
  - Dry skin [Not Recovered/Not Resolved]
  - Skin exfoliation [Recovered/Resolved]
  - Stomatitis [Not Recovered/Not Resolved]
  - Dehydration [Recovered/Resolved]
  - Pain [Not Recovered/Not Resolved]
  - Asthenia [Not Recovered/Not Resolved]
  - Abdominal pain [Not Recovered/Not Resolved]
  - Decreased appetite [Recovering/Resolving]
  - Protein total increased [Recovered/Resolved]
  - Skin hyperpigmentation [Recovering/Resolving]
  - Skin fissures [Recovering/Resolving]
  - Fatigue [Not Recovered/Not Resolved]
  - Somnolence [Unknown]
  - Alpha 1 foetoprotein increased [Recovering/Resolving]
  - Abdominal discomfort [Not Recovered/Not Resolved]
  - Oropharyngeal pain [Recovering/Resolving]
  - Off label use [Not Recovered/Not Resolved]

NARRATIVE: CASE EVENT DATE: 2019
